FAERS Safety Report 6831582-8 (Version None)
Quarter: 2010Q3

REPORT INFORMATION
  Report Type: 
  Country: None (occurrence: None)
  Receive Date: 20100706
  Receipt Date: 20100613
  Transmission Date: 20110219
  Serious: Yes (Hospitalization)
  Sender: FDA-Public Use
  Company Number: BCN-AS-2010-RR-201 2010RR-32929

PATIENT
  Age: 80 Year
  Sex: Female

DRUGS (4)
  1. LISINOPRIL [Suspect]
     Indication: HYPERTENSION
     Dosage: 2.5 NG QD, ORAL
     Route: 048
     Dates: start: 20020718, end: 20100315
  2. BENDROFLLUMETHIAZIDE (BENDROFLUMETHIAZIDE) [Suspect]
     Indication: HYPERTENSION
     Dosage: 2.5 NG, QD, ORAL
     Route: 048
     Dates: start: 19991108, end: 20100315
  3. CO-CODAMOL (CODEIMNE PHOSPHATE, PARACETAMOL) [Concomitant]
  4. VISCOTEARS (CARBOMER, CARBOMER 980) [Concomitant]

REACTIONS (4)
  - DIARRHOEA [None]
  - HYPOPHAGIA [None]
  - RENAL FAILURE ACUTE [None]
  - VOMITING [None]
